FAERS Safety Report 8219284-7 (Version None)
Quarter: 2012Q1

REPORT INFORMATION
  Report Type: 
  Country: None (occurrence: None)
  Receive Date: 20120307
  Receipt Date: 20100225
  Transmission Date: 20120608
  Serious: Yes (Death)
  Sender: FDA-Public Use
  Company Number: PHEH2010US02546

PATIENT
  Age: 80 Year
  Sex: Female

DRUGS (1)
  1. AFINITOR [Suspect]
     Indication: RENAL FAILURE
     Dosage: 10 MG, QD, ORAL
     Route: 048
     Dates: start: 20100101

REACTIONS (1)
  - RENAL FAILURE ACUTE [None]
